FAERS Safety Report 4589180-5 (Version None)
Quarter: 2005Q1

REPORT INFORMATION
  Report Type: 
  Country: None (occurrence: None)
  Receive Date: 20050216
  Receipt Date: 20050216
  Transmission Date: 20050727
  Serious: Yes (Death)
  Sender: FDA-Public Use
  Company Number: None

PATIENT
  Age: 21 Year
  Sex: Male
  Weight: 85.5 kg

DRUGS (2)
  1. LEXAPRO [Suspect]
     Indication: ANXIETY
     Dosage: 45 MG, SINGLE DOSE, PO
     Route: 048
     Dates: start: 20040306
  2. LEXAPRO [Suspect]
     Indication: DEPRESSION
     Dosage: 45 MG, SINGLE DOSE, PO
     Route: 048
     Dates: start: 20040306

REACTIONS (4)
  - COMA [None]
  - HYPERTROPHIC CARDIOMYOPATHY [None]
  - NAUSEA [None]
  - THERAPEUTIC AGENT TOXICITY [None]
